FAERS Safety Report 13215750 (Version 2)
Quarter: 2017Q1

REPORT INFORMATION
  Report Type: Spontaneous
  Country: FR (occurrence: FR)
  Receive Date: 20170210
  Receipt Date: 20170217
  Transmission Date: 20170428
  Serious: Yes (Hospitalization)
  Sender: FDA-Public Use
  Company Number: FR-ALLERGAN-1704869US

PATIENT
  Age: 81 Year
  Sex: Male

DRUGS (14)
  1. SUFENTA [Suspect]
     Active Substance: SUFENTANIL CITRATE
     Dosage: UNK
     Route: 042
     Dates: start: 20140424, end: 20140424
  2. KETAMINE PANPHARMA [Suspect]
     Active Substance: KETAMINE
     Indication: ANAESTHESIA
     Dosage: UNK
     Route: 042
     Dates: start: 20140324, end: 20140324
  3. PROFENID [Suspect]
     Active Substance: KETOPROFEN
     Indication: GAIT DISTURBANCE
     Dosage: UNK
     Route: 042
     Dates: start: 20140324, end: 20140324
  4. CEFUROXIME. [Suspect]
     Active Substance: CEFUROXIME
     Indication: ANTIBIOTIC PROPHYLAXIS
     Dosage: UNK
     Route: 047
     Dates: start: 20140324, end: 20140324
  5. FLURBIPROFEN SODIUM - BP [Suspect]
     Active Substance: FLURBIPROFEN SODIUM
     Indication: MYDRIASIS
     Dosage: UNK
     Route: 047
     Dates: start: 20140324, end: 20140324
  6. COVERSYL [Suspect]
     Active Substance: PERINDOPRIL
     Indication: HYPERTENSION
     Dosage: 1 DF, QD
     Route: 048
     Dates: end: 20140426
  7. CARBOCAINE [Suspect]
     Active Substance: MEPIVACAINE HYDROCHLORIDE
     Indication: ANAESTHESIA
     Dosage: UNK
     Route: 042
     Dates: start: 20140324, end: 20140324
  8. ACUPAN [Suspect]
     Active Substance: NEFOPAM HYDROCHLORIDE
     Indication: GAIT DISTURBANCE
     Dosage: UNK
     Route: 042
     Dates: start: 20140324, end: 20140324
  9. NEOSYNEPHRINE [Suspect]
     Active Substance: PHENYLEPHRINE HYDROCHLORIDE
     Indication: MYDRIASIS
     Dosage: UNK
     Route: 047
     Dates: start: 20140324, end: 20140324
  10. TROPICAMIDE FAURE [Suspect]
     Active Substance: TROPICAMIDE
     Indication: MYDRIASIS
     Dosage: UNK
     Route: 047
     Dates: start: 20140324, end: 20140324
  11. MIDAZOLAM [Suspect]
     Active Substance: MIDAZOLAM HYDROCHLORIDE
     Dosage: UNK
     Route: 065
     Dates: start: 20140324, end: 20140324
  12. SUFENTA [Suspect]
     Active Substance: SUFENTANIL CITRATE
     Indication: ANAESTHESIA
     Dosage: UNK
     Route: 042
     Dates: start: 20140324, end: 20140324
  13. MIDAZOLAM [Suspect]
     Active Substance: MIDAZOLAM HYDROCHLORIDE
     Indication: ANAESTHESIA
     Dosage: UNK
     Route: 042
     Dates: start: 20140324, end: 20140324
  14. PERFALGAN [Suspect]
     Active Substance: ACETAMINOPHEN
     Indication: GAIT DISTURBANCE
     Dosage: UNK
     Route: 042
     Dates: start: 20140324, end: 20140324

REACTIONS (2)
  - Angioedema [Recovered/Resolved]
  - Anaphylactoid shock [Recovered/Resolved]

NARRATIVE: CASE EVENT DATE: 20140324
